FAERS Safety Report 11414576 (Version 2)
Quarter: 2015Q3

REPORT INFORMATION
  Report Type: Report from Study
  Country: US (occurrence: US)
  Receive Date: 20150825
  Receipt Date: 20150901
  Transmission Date: 20151125
  Serious: No
  Sender: FDA-Public Use
  Company Number: US-AMGEN-USASP2015084323

PATIENT
  Sex: Male

DRUGS (1)
  1. ENBREL [Suspect]
     Active Substance: ETANERCEPT
     Indication: RHEUMATOID ARTHRITIS
     Dosage: 50 MG, QWK
     Route: 065
     Dates: start: 20150707

REACTIONS (6)
  - Injection site exfoliation [Unknown]
  - Pain [Unknown]
  - Joint swelling [Unknown]
  - Injection site rash [Recovered/Resolved]
  - Skin disorder [Unknown]
  - Contusion [Unknown]

NARRATIVE: CASE EVENT DATE: 20150809
